FAERS Safety Report 6167210-7 (Version None)
Quarter: 2009Q2

REPORT INFORMATION
  Report Type: 
  Country: None (occurrence: None)
  Receive Date: 20090424
  Receipt Date: 20090415
  Transmission Date: 20091009
  Serious: Yes (Death, Other)
  Sender: FDA-Public Use
  Company Number: US-PFIZER INC-2009199632

PATIENT
  Sex: Female
  Weight: 51.255 kg

DRUGS (2)
  1. LIPITOR [Suspect]
     Indication: BLOOD CHOLESTEROL INCREASED
     Dosage: 10 MG, 1X/DAY
     Dates: start: 19900101, end: 20070101
  2. FOSAMAX [Concomitant]
     Dosage: UNK

REACTIONS (8)
  - CAROTID ARTERY OCCLUSION [None]
  - CEREBROVASCULAR ACCIDENT [None]
  - CHOLECYSTITIS INFECTIVE [None]
  - DEATH [None]
  - FALL [None]
  - HYPERTENSION [None]
  - PARALYSIS [None]
  - PELVIC FRACTURE [None]
